FAERS Safety Report 8505780-1 (Version None)
Quarter: 2012Q3

REPORT INFORMATION
  Report Type: 
  Country: None (occurrence: None)
  Receive Date: 20120712
  Receipt Date: 20120702
  Transmission Date: 20120928
  Serious: Yes (Other)
  Sender: FDA-Public Use
  Company Number: CN-JNJFOC-20120702263

PATIENT
  Age: 11 Month
  Sex: Male
  Weight: 10 kg

DRUGS (2)
  1. CONCENTRATED TYLENOL INFANT DROPS [Suspect]
     Indication: PYREXIA
     Dosage: 1.5 G/15 ML, 4ML ONCE
     Route: 048
     Dates: start: 20120702, end: 20120702
  2. UNKNOWN MEDICATION [Suspect]
     Indication: PYREXIA
     Route: 048
     Dates: start: 20120702, end: 20120702

REACTIONS (3)
  - INCORRECT DOSE ADMINISTERED [None]
  - FEBRILE CONVULSION [None]
  - AGITATION [None]
